FAERS Safety Report 5559043-7 (Version None)
Quarter: 2007Q4

REPORT INFORMATION
  Report Type: 
  Country: None (occurrence: None)
  Receive Date: 20071214
  Receipt Date: 20070911
  Transmission Date: 20080405
  Serious: No
  Sender: FDA-Public Use
  Company Number: US-ABBOTT-07P-163-0417254-00

PATIENT
  Sex: Female

DRUGS (3)
  1. HUMIRA [Suspect]
     Indication: IRRITABLE BOWEL SYNDROME
     Route: 058
     Dates: start: 20070701
  2. AZATHIOPRINE [Concomitant]
     Indication: IRRITABLE BOWEL SYNDROME
  3. CETIRIZINE HYDROCHLORIDE [Concomitant]
     Indication: DRUG USE FOR UNKNOWN INDICATION
     Route: 048

REACTIONS (3)
  - EYE SWELLING [None]
  - LIP SWELLING [None]
  - SUNBURN [None]
